FAERS Safety Report 8121149-6 (Version None)
Quarter: 2012Q1

REPORT INFORMATION
  Report Type: 
  Country: None (occurrence: None)
  Receive Date: 20120208
  Receipt Date: 20120201
  Transmission Date: 20120608
  Serious: Yes (Life-Threatening, Hospitalization, Other)
  Sender: FDA-Public Use
  Company Number: US-BRISTOL-MYERS SQUIBB COMPANY-16337131

PATIENT
  Age: 60 Year
  Sex: Female

DRUGS (4)
  1. NULOJIX [Suspect]
     Indication: RENAL TRANSPLANT
     Route: 042
     Dates: start: 20111227, end: 20111227
  2. MYCOPHENOLATE MEFETIL [Suspect]
     Route: 042
     Dates: start: 20111227, end: 20111229
  3. ALEMTUZUMAB [Suspect]
     Route: 042
     Dates: start: 20111227, end: 20111227
  4. METHYLPREDNISOLONE [Suspect]
     Route: 048
     Dates: start: 20111227, end: 20111227

REACTIONS (3)
  - DISSEMINATED INTRAVASCULAR COAGULATION [None]
  - RENAL VEIN THROMBOSIS [None]
  - GRAFT LOSS [None]
